FAERS Safety Report 6113939-6 (Version None)
Quarter: 2009Q1

REPORT INFORMATION
  Report Type: 
  Country: None (occurrence: None)
  Receive Date: 20090312
  Receipt Date: 20090128
  Transmission Date: 20090719
  Serious: No
  Sender: FDA-Public Use
  Company Number: US-ABBOTT-09P-163-0498908-00

PATIENT
  Sex: Female
  Weight: 95.34 kg

DRUGS (1)
  1. LUPRON DEPOT [Suspect]
     Indication: GENITAL CYST
     Dates: start: 20090106

REACTIONS (4)
  - HEADACHE [None]
  - HOT FLUSH [None]
  - NASOPHARYNGITIS [None]
  - PYREXIA [None]
